FAERS Safety Report 4785131-9 (Version None)
Quarter: 2005Q3

REPORT INFORMATION
  Report Type: 
  Country: None (occurrence: None)
  Receive Date: 20050928
  Receipt Date: 20050912
  Transmission Date: 20060218
  Serious: Yes (Hospitalization)
  Sender: FDA-Public Use
  Company Number: CA-2005-018094

PATIENT
  Age: 74 Year
  Sex: Female

DRUGS (7)
  1. BETASERON [Suspect]
     Indication: RELAPSING-REMITTING MULTIPLE SCLEROSIS
     Dosage: 8 MIU, 3X/WEEK, SUBCUTANEOUS
     Route: 058
     Dates: start: 19950305, end: 20050727
  2. LASIX [Concomitant]
  3. SPIRONOLACTONE [Concomitant]
  4. LOSEC/CAN/(OMEPRAZOLE MAGNESIUM) [Concomitant]
  5. ATIVAN [Concomitant]
  6. OXAZEPAM [Concomitant]
  7. VITAMIN D [Concomitant]

REACTIONS (9)
  - BEDRIDDEN [None]
  - BLOOD BLISTER [None]
  - HAEMATOMA [None]
  - HAEMOGLOBIN DECREASED [None]
  - HAEMORRHAGE [None]
  - SKIN NECROSIS [None]
  - THROMBOSIS [None]
  - VENOUS INJURY [None]
  - WOUND SECRETION [None]
